FAERS Safety Report 5892469-0 (Version None)
Quarter: 2008Q3

REPORT INFORMATION
  Report Type: 
  Country: None (occurrence: None)
  Receive Date: 20080923
  Receipt Date: 20080916
  Transmission Date: 20090109
  Serious: Yes (Death)
  Sender: FDA-Public Use
  Company Number: FR-JNJFOC-20080903398

PATIENT
  Sex: Female

DRUGS (7)
  1. RISPERDAL [Suspect]
     Indication: AGITATION
     Route: 048
  2. RISPERDAL [Suspect]
     Indication: DELIRIUM
     Route: 048
  3. EQUANIL [Suspect]
     Route: 048
  4. EQUANIL [Suspect]
     Indication: AGITATION
     Route: 048
  5. EXELON [Suspect]
     Indication: DEMENTIA OF THE ALZHEIMER'S TYPE, WITH DEPRESSED MOOD
     Dosage: 2 CAPSULES
     Route: 048
  6. EXELON [Suspect]
  7. NORSET [Suspect]
     Indication: DRUG USE FOR UNKNOWN INDICATION
     Route: 048

REACTIONS (9)
  - ABNORMAL BEHAVIOUR [None]
  - FACTOR V DEFICIENCY [None]
  - GALLBLADDER DISORDER [None]
  - HEPATITIS FULMINANT [None]
  - MIOSIS [None]
  - PROTHROMBIN TIME PROLONGED [None]
  - RESPIRATORY ARREST [None]
  - SCREAMING [None]
  - VOMITING [None]
